FAERS Safety Report 6465975-8 (Version None)
Quarter: 2009Q4

REPORT INFORMATION
  Report Type: 
  Country: None (occurrence: None)
  Receive Date: 20091202
  Receipt Date: 20091119
  Transmission Date: 20100525
  Serious: Yes (Other)
  Sender: FDA-Public Use
  Company Number: US-RANBAXY-2009RR-29269

PATIENT
  Age: 79 Year
  Sex: Male

DRUGS (9)
  1. SIMVASTATIN [Suspect]
     Indication: LOW DENSITY LIPOPROTEIN INCREASED
     Dosage: 40 MG, UNK
  2. SIMVASTATIN [Suspect]
     Dosage: 20 MG, UNK
  3. FLUVASTATIN [Suspect]
     Indication: LOW DENSITY LIPOPROTEIN INCREASED
     Dosage: 80 MG, QD
  4. SIMVASTATIN [Concomitant]
     Dosage: 10 MG, QD
  5. WARFARIN SODIUM [Concomitant]
     Dosage: 2 MG, QD
     Route: 048
  6. TRIAMTERINE/HYDROCHLOROTHIAZIDE [Concomitant]
     Dosage: 37.5MG/ 25MG
     Route: 048
  7. DILTIAZEM [Concomitant]
     Dosage: 120 MG, QD
     Route: 048
  8. ASPIRIN [Concomitant]
     Dosage: 81 MG, QD
     Route: 048
  9. MECLIZINE [Concomitant]
     Indication: DIZZINESS
     Dosage: 25 MG, TID
     Route: 048

REACTIONS (1)
  - NIGHTMARE [None]
